FAERS Safety Report 4932769-1 (Version None)
Quarter: 2006Q1

REPORT INFORMATION
  Report Type: 
  Country: None (occurrence: None)
  Receive Date: 20060306
  Receipt Date: 20060227
  Transmission Date: 20060701
  Serious: No
  Sender: FDA-Public Use
  Company Number: 2006UW03374

PATIENT
  Age: 44 Year
  Sex: Female
  Weight: 73 kg

DRUGS (2)
  1. SEROQUEL [Suspect]
     Indication: OFF LABEL USE
     Route: 048
     Dates: start: 20051001
  2. WELLBUTRIN [Concomitant]

REACTIONS (2)
  - INFLUENZA LIKE ILLNESS [None]
  - WHITE BLOOD CELL COUNT DECREASED [None]
